FAERS Safety Report 17847922 (Version 3)
Quarter: 2021Q1

REPORT INFORMATION
  Report Type: Spontaneous
  Country: US (occurrence: US)
  Receive Date: 20200601
  Receipt Date: 20210305
  Transmission Date: 20210419
  Serious: Yes (Other)
  Sender: FDA-Public Use
  Company Number: US-PFIZER INC-2020-07833

PATIENT
  Age: 56 Year
  Sex: Male

DRUGS (3)
  1. BRAFTOVI [Suspect]
     Active Substance: ENCORAFENIB
     Dosage: 75 MG, 1X/DAY
     Route: 048
     Dates: start: 2020
  2. GABAPENTIN. [Concomitant]
     Active Substance: GABAPENTIN
     Indication: NEURALGIA
  3. BRAFTOVI [Suspect]
     Active Substance: ENCORAFENIB
     Indication: COLON CANCER
     Dosage: 300 MG, 1X/DAY
     Route: 048
     Dates: start: 20200401, end: 2020

REACTIONS (15)
  - Bone disorder [Unknown]
  - Product dose omission issue [Unknown]
  - Rash macular [Unknown]
  - Rash [Unknown]
  - Depressed mood [Unknown]
  - Pneumonia [Unknown]
  - Visual impairment [Unknown]
  - Disturbance in attention [Unknown]
  - Hypotension [Unknown]
  - Nausea [Unknown]
  - Neoplasm progression [Unknown]
  - Electrocardiogram QT prolonged [Unknown]
  - Off label use [Unknown]
  - Product dose omission issue [Unknown]
  - Cognitive disorder [Unknown]

NARRATIVE: CASE EVENT DATE: 2020
